FAERS Safety Report 6516047-5 (Version None)
Quarter: 2009Q4

REPORT INFORMATION
  Report Type: 
  Country: None (occurrence: None)
  Receive Date: 20091223
  Receipt Date: 20090713
  Transmission Date: 20100525
  Serious: No
  Sender: FDA-Public Use
  Company Number: US-ABBOTT-09P-163-0587077-00

PATIENT
  Age: 81 Year
  Sex: Male

DRUGS (1)
  1. LEUPROLIDE ACETATE [Suspect]
     Indication: DRUG USE FOR UNKNOWN INDICATION

REACTIONS (7)
  - ANAEMIA [None]
  - HOT FLUSH [None]
  - HYPERTENSION [None]
  - SINUS CONGESTION [None]
  - URINARY TRACT INFECTION [None]
  - URINE FLOW DECREASED [None]
  - WEIGHT INCREASED [None]
